FAERS Safety Report 7770985-4 (Version None)
Quarter: 2011Q3

REPORT INFORMATION
  Report Type: 
  Country: None (occurrence: None)
  Receive Date: 20110922
  Receipt Date: 20110406
  Transmission Date: 20111222
  Serious: No
  Sender: FDA-Public Use
  Company Number: US-ASTRAZENECA-2009SE32550

PATIENT
  Sex: Female
  Weight: 75.3 kg

DRUGS (9)
  1. TYLENOL PM [Concomitant]
  2. SEROQUEL [Suspect]
     Indication: SLEEP DISORDER
     Route: 048
  3. NORCO [Concomitant]
     Indication: PAIN IN EXTREMITY
  4. SEROQUEL [Suspect]
     Route: 048
     Dates: start: 20090101
  5. XANEX [Concomitant]
     Indication: BIPOLAR DISORDER
  6. SEROQUEL [Suspect]
     Indication: DEPRESSION
     Route: 048
  7. SEROQUEL [Suspect]
     Route: 048
  8. SEROQUEL [Suspect]
     Route: 048
     Dates: start: 20090101
  9. SEROQUEL [Suspect]
     Route: 048

REACTIONS (14)
  - IMPATIENCE [None]
  - IRRITABILITY [None]
  - TACHYPHRENIA [None]
  - PANIC ATTACK [None]
  - DRUG DOSE OMISSION [None]
  - ANGER [None]
  - PSYCHOMOTOR HYPERACTIVITY [None]
  - FALL [None]
  - FEELING ABNORMAL [None]
  - FEELING JITTERY [None]
  - INSOMNIA [None]
  - INTENTIONAL DRUG MISUSE [None]
  - SELF-INJURIOUS IDEATION [None]
  - ABNORMAL BEHAVIOUR [None]
